FAERS Safety Report 5689303-0 (Version None)
Quarter: 2008Q1

REPORT INFORMATION
  Report Type: 
  Country: None (occurrence: None)
  Receive Date: 20080331
  Receipt Date: 20080325
  Transmission Date: 20080703
  Serious: Yes (Other)
  Sender: FDA-Public Use
  Company Number: US-BOEHRINGER INGELHEIM GMBH, GERMANY-2008-BP-04582RO

PATIENT
  Age: 49 Year
  Sex: Male

DRUGS (15)
  1. OXANDROLONE [Suspect]
     Indication: CACHEXIA
     Dates: start: 19990101, end: 20031101
  2. OXANDROLONE [Suspect]
     Dates: start: 19990101, end: 20031101
  3. TESTOSTERONE CYPIONATE [Suspect]
     Indication: HYPOGONADISM
     Route: 030
     Dates: start: 20000301, end: 20020101
  4. TESTOSTERONE CYPIONATE [Suspect]
     Dates: start: 20000301, end: 20020101
  5. ZIDOVUDINE [Concomitant]
     Indication: ANTIRETROVIRAL THERAPY
     Dates: start: 19960101, end: 19990101
  6. LAMIVUDINE [Concomitant]
     Indication: ANTIRETROVIRAL THERAPY
     Dates: start: 19960101, end: 19990101
  7. LAMIVUDINE [Concomitant]
     Dates: start: 20010101
  8. SAQUINAVIR [Concomitant]
     Indication: ANTIRETROVIRAL THERAPY
     Dates: start: 19960101, end: 19990101
  9. STAVUDINE [Concomitant]
     Indication: ANTIRETROVIRAL THERAPY
     Dates: start: 20010101
  10. ABACAVIR [Concomitant]
     Indication: ANTIRETROVIRAL THERAPY
     Dates: start: 20010101
  11. DIDANOSINE [Concomitant]
     Indication: ANTIRETROVIRAL THERAPY
     Dates: start: 20010101
  12. TENOFOVIR [Concomitant]
     Indication: ANTIRETROVIRAL THERAPY
     Dates: start: 20010101
  13. EFAVIRENZ [Concomitant]
     Indication: ANTIRETROVIRAL THERAPY
     Dates: start: 20010101
  14. NEVIRAPINE [Concomitant]
     Indication: ANTIRETROVIRAL THERAPY
     Dates: start: 20010101
  15. NELFINAVIR [Concomitant]
     Indication: ANTIRETROVIRAL THERAPY
     Dates: start: 20010101

REACTIONS (3)
  - BLOOD TESTOSTERONE DECREASED [None]
  - ERECTILE DYSFUNCTION [None]
  - SEX HORMONE BINDING GLOBULIN DECREASED [None]
